FAERS Safety Report 9238408 (Version 1)
Quarter: 2013Q2

REPORT INFORMATION
  Report Type: Spontaneous
  Country: US (occurrence: None)
  Receive Date: 20130417
  Receipt Date: 20130417
  Transmission Date: 20140414
  Serious: Yes (Other)
  Sender: FDA-Public Use
  Company Number: None

PATIENT
  Age: 18 Year
  Sex: Female
  Weight: 123.38 kg

DRUGS (2)
  1. AMOXIL [Suspect]
     Indication: EAR INFECTION
     Route: 048
     Dates: start: 20130412, end: 20130415
  2. FLUTICASONE PROPIONATE [Suspect]
     Indication: SINUSITIS
     Route: 045
     Dates: start: 20130412, end: 20130415

REACTIONS (5)
  - Diarrhoea [None]
  - Nausea [None]
  - Pollakiuria [None]
  - Back pain [None]
  - Genital discomfort [None]
